FAERS Safety Report 9649501 (Version 1)
Quarter: 2013Q4

REPORT INFORMATION
  Report Type: Spontaneous
  Country: US (occurrence: US)
  Receive Date: 20131028
  Receipt Date: 20131028
  Transmission Date: 20140711
  Serious: Yes (Other)
  Sender: FDA-Public Use
  Company Number: PHEH2013US022350

PATIENT
  Sex: 0

DRUGS (1)
  1. FANAPT [Suspect]
     Dosage: UNK UKN, UNK

REACTIONS (2)
  - Blood disorder [Unknown]
  - Leukopenia [Unknown]
